FAERS Safety Report 4363845-2 (Version None)
Quarter: 2004Q2

REPORT INFORMATION
  Report Type: 
  Country: None (occurrence: None)
  Receive Date: 20040520
  Receipt Date: 20040520
  Transmission Date: 20050107
  Serious: Yes (Hospitalization)
  Sender: FDA-Public Use
  Company Number: None

PATIENT
  Age: 33 Year
  Sex: Male

DRUGS (2)
  1. VANCOMYCIN [Suspect]
     Indication: ARTHRITIS BACTERIAL
     Dosage: INTRAVENOUS
     Route: 042
     Dates: start: 20040125, end: 20040215
  2. LINEZOLID [Concomitant]

REACTIONS (2)
  - HYPERSENSITIVITY [None]
  - RASH MORBILLIFORM [None]
